FAERS Safety Report 10036462 (Version 1)
Quarter: 2014Q1

REPORT INFORMATION
  Report Type: Spontaneous
  Country: NO (occurrence: NO)
  Receive Date: 20140326
  Receipt Date: 20140326
  Transmission Date: 20141002
  Serious: Yes (Disabling)
  Sender: FDA-Public Use
  Company Number: NO-009507513-1403NOR007484

PATIENT
  Age: 7 Month
  Sex: Male

DRUGS (3)
  1. INTRONA [Suspect]
     Indication: ESSENTIAL THROMBOCYTHAEMIA
     Dosage: 3 MILLION IU, TIW
     Route: 064
     Dates: start: 200811, end: 20130523
  2. FRAGMIN [Concomitant]
     Indication: ESSENTIAL THROMBOCYTHAEMIA
     Dosage: 5000 IU, QD
     Route: 064
     Dates: start: 201305, end: 201307
  3. ALBYL-E [Concomitant]
     Indication: ESSENTIAL THROMBOCYTHAEMIA
     Dosage: 75 MG, QD
     Route: 064
     Dates: start: 200811

REACTIONS (1)
  - Cerebral palsy [Not Recovered/Not Resolved]
